FAERS Safety Report 9559226 (Version 1)
Quarter: 2013Q3

REPORT INFORMATION
  Report Type: Spontaneous
  Country: US (occurrence: None)
  Receive Date: 20130906
  Receipt Date: 20130906
  Transmission Date: 20140515
  Serious: No
  Sender: FDA-Public Use
  Company Number: 163-POMAL-13081273

PATIENT
  Age: 51 Year
  Sex: Female
  Weight: 71.7 kg

DRUGS (2)
  1. POMALYST [Suspect]
     Indication: PLASMA CELL MYELOMA
     Dosage: 4 MG , 1 IN 1 D, PO
     Route: 048
     Dates: start: 201306
  2. DEXAMETHASONE (DEXAMETHSONE) [Concomitant]

REACTIONS (1)
  - Adverse drug reaction [None]
